FAERS Safety Report 9268858 (Version 1)
Quarter: 2013Q2

REPORT INFORMATION
  Report Type: Spontaneous
  Country: DE (occurrence: DE)
  Receive Date: 20130503
  Receipt Date: 20130503
  Transmission Date: 20140414
  Serious: Yes (Disabling, Congenital Anomaly, Other)
  Sender: FDA-Public Use
  Company Number: GXKR2013DE001681

PATIENT
  Sex: 0

DRUGS (4)
  1. AMITRIPTYLINE [Suspect]
     Dosage: 75 MG/D SINCE 12/2009 REDUCED TO 50 MG/D AND 25 MG/ IN GW 25, STOPPED AT GW 28
     Route: 064
  2. PARACETAMOL [Concomitant]
     Dosage: 500 MG/D/ AS NEEDED, CIRCA ONCE A WEEK
     Route: 064
  3. AMOXICILLIN [Concomitant]
     Dosage: UNK UKN, UNK
     Route: 064
  4. FEMIBION [Concomitant]
     Dosage: 0.4 MG, UNK
     Route: 064
     Dates: start: 20111220, end: 20120920

REACTIONS (8)
  - Small for dates baby [Not Recovered/Not Resolved]
  - Accessory auricle [Not Recovered/Not Resolved]
  - Hypoacusis [Not Recovered/Not Resolved]
  - Torticollis [Unknown]
  - Microgenia [Not Recovered/Not Resolved]
  - Coordination abnormal [Unknown]
  - Congenital aural fistula [Unknown]
  - Exposure during pregnancy [Unknown]
